FAERS Safety Report 7759159-0 (Version None)
Quarter: 2011Q3

REPORT INFORMATION
  Report Type: 
  Country: None (occurrence: None)
  Receive Date: 20110919
  Receipt Date: 20110915
  Transmission Date: 20111222
  Serious: Yes (Other)
  Sender: FDA-Public Use
  Company Number: PHHY2011AU82047

PATIENT
  Sex: Male

DRUGS (1)
  1. EXJADE [Suspect]
     Indication: IRON OVERLOAD
     Dosage: 2250 MG, UNK
     Route: 048
     Dates: start: 20100901

REACTIONS (3)
  - FURUNCLE [None]
  - SPINAL CORD DISORDER [None]
  - DIARRHOEA [None]
